FAERS Safety Report 13905021 (Version 1)
Quarter: 2017Q3

REPORT INFORMATION
  Report Type: Report from Study
  Country: US (occurrence: US)
  Receive Date: 20170825
  Receipt Date: 20170825
  Transmission Date: 20171127
  Serious: Yes (Hospitalization)
  Sender: FDA-Public Use
  Company Number: US-GILEAD-2017-0285550

PATIENT
  Age: 78 Year
  Sex: Female

DRUGS (5)
  1. AMBRISENTAN [Suspect]
     Active Substance: AMBRISENTAN
     Indication: PRODUCT USED FOR UNKNOWN INDICATION
     Dosage: 10 MG, QD
     Route: 065
     Dates: start: 20140519
  2. TYVASO [Suspect]
     Active Substance: TREPROSTINIL
     Indication: PRODUCT USED FOR UNKNOWN INDICATION
     Dosage: 3 BREATHS
     Route: 065
     Dates: start: 20170726
  3. ADCIRCA [Concomitant]
     Active Substance: TADALAFIL
  4. TYVASO [Suspect]
     Active Substance: TREPROSTINIL
     Dosage: 6 BREATHS, QID
     Route: 065
  5. ELIQUIS [Concomitant]
     Active Substance: APIXABAN

REACTIONS (2)
  - Cough [Not Recovered/Not Resolved]
  - Unevaluable event [Unknown]
